FAERS Safety Report 23839456 (Version 3)
Quarter: 2024Q2

REPORT INFORMATION
  Report Type: Spontaneous
  Country: DE (occurrence: None)
  Receive Date: 20240510
  Receipt Date: 20240517
  Transmission Date: 20240715
  Serious: Yes (Other)
  Sender: FDA-Public Use
  Company Number: 2024A108069

PATIENT
  Age: 36 Year
  Sex: Female

DRUGS (7)
  1. LYNPARZA [Suspect]
     Active Substance: OLAPARIB
     Indication: Ovarian cancer
     Dosage: 600.0MG UNKNOWN
     Route: 048
     Dates: start: 201604
  2. LYNPARZA [Suspect]
     Active Substance: OLAPARIB
     Indication: Ovarian cancer
     Dosage: 200.0MG UNKNOWN
     Route: 048
     Dates: start: 201607
  3. LYNPARZA [Suspect]
     Active Substance: OLAPARIB
     Indication: Ovarian cancer
     Dosage: 100.0MG UNKNOWN
     Route: 048
     Dates: start: 2019
  4. PANTOPRAZOLE [Concomitant]
     Active Substance: PANTOPRAZOLE
  5. TELMISARTAN [Concomitant]
     Active Substance: TELMISARTAN
     Dosage: HALF TABLET PER DAY
  6. L-TIROXINE [Concomitant]
     Dosage: 75 1 PER DAY
  7. VITAMINS [Concomitant]
     Active Substance: VITAMINS

REACTIONS (3)
  - Squamous cell carcinoma of the oral cavity [Unknown]
  - Anaemia [Unknown]
  - Therapy change [Unknown]
